FAERS Safety Report 5062168-6 (Version None)
Quarter: 2006Q3

REPORT INFORMATION
  Report Type: 
  Country: None (occurrence: None)
  Receive Date: 20060726
  Receipt Date: 20060714
  Transmission Date: 20061208
  Serious: Yes (Hospitalization, Disabling)
  Sender: FDA-Public Use
  Company Number: 2006GB01246

PATIENT
  Age: 32632 Day
  Sex: Female

DRUGS (1)
  1. NOLVADEX [Suspect]
     Indication: BREAST CANCER
     Route: 048
     Dates: start: 19990121, end: 20040205

REACTIONS (4)
  - ACCIDENT [None]
  - BACK PAIN [None]
  - FALL [None]
  - OSTEOPOROSIS [None]
